FAERS Safety Report 19185366 (Version 1)
Quarter: 2021Q2

REPORT INFORMATION
  Report Type: Spontaneous
  Country: FR (occurrence: FR)
  Receive Date: 20210427
  Receipt Date: 20210427
  Transmission Date: 20210717
  Serious: Yes (Other)
  Sender: FDA-Public Use
  Company Number: FR-TEVA-2021-FR-1905093

PATIENT
  Age: 73 Year
  Sex: Male

DRUGS (4)
  1. LAMPRENE [Concomitant]
     Active Substance: CLOFAZIMINE
     Dosage: 1 DF
     Route: 048
     Dates: start: 202006, end: 20201228
  2. LINEZOLIDE [Suspect]
     Active Substance: LINEZOLID
     Indication: MYCOBACTERIUM ABSCESSUS INFECTION
     Dosage: 1.2GR / DAY UNTIL 25?NOV?20 THEN 600MG / DAY
     Route: 048
     Dates: start: 20201116, end: 20201228
  3. KAYCE [Concomitant]
     Dosage: 70 MG
     Route: 055
     Dates: start: 202007, end: 20201228
  4. TOVIAZ [Concomitant]
     Active Substance: FESOTERODINE FUMARATE
     Dosage: 1 DF, THERAPY END DATE : ASKED BUT UNKNOWN
     Route: 048

REACTIONS (2)
  - Eosinophilia [Recovered/Resolved]
  - Hepatitis acute [Recovered/Resolved]

NARRATIVE: CASE EVENT DATE: 20201020
